FAERS Safety Report 9195280 (Version 1)
Quarter: 2013Q1

REPORT INFORMATION
  Report Type: Spontaneous
  Country: US (occurrence: US)
  Receive Date: 20130328
  Receipt Date: 20130328
  Transmission Date: 20140127
  Serious: No
  Sender: FDA-Public Use
  Company Number: US-ALLERGAN-1212536US

PATIENT
  Age: 69 Year
  Sex: Female

DRUGS (8)
  1. LATISSE 0.03% [Suspect]
     Indication: GROWTH OF EYELASHES
     Dosage: 2 GTT, UNK
     Route: 061
     Dates: start: 2010
  2. PREDNISONE [Concomitant]
     Indication: ARTHRITIS
     Dosage: UNK UNK, QD
     Route: 048
     Dates: start: 201204
  3. POTASSIUM [Concomitant]
     Indication: MUSCLE SPASMS
     Dosage: UNK UNK, QD
     Route: 048
     Dates: start: 2010
  4. MAXI- VISION [Concomitant]
     Indication: NUTRITIONAL SUPPLEMENTATION
     Dosage: UNK, QD
     Route: 048
  5. SYNTHROID [Concomitant]
     Indication: HYPOTHYROIDISM
     Dosage: UNK, QD
     Route: 048
     Dates: start: 201202
  6. TEMAZEPAM [Concomitant]
     Indication: INSOMNIA
     Dosage: UNK, QHS
     Route: 048
  7. MELATONIN [Concomitant]
     Indication: INSOMNIA
     Dosage: UNK, QHS
     Route: 048
  8. OMEPRAZOLE [Concomitant]
     Indication: GASTROOESOPHAGEAL REFLUX DISEASE
     Dosage: UNK UNK, QD
     Route: 048

REACTIONS (3)
  - Inappropriate schedule of drug administration [Unknown]
  - Hair growth abnormal [Unknown]
  - Hair growth abnormal [Unknown]
